FAERS Safety Report 13608977 (Version 1)
Quarter: 2017Q2

REPORT INFORMATION
  Report Type: Spontaneous
  Country: JP (occurrence: JP)
  Receive Date: 20170602
  Receipt Date: 20170602
  Transmission Date: 20170830
  Serious: Yes (Other)
  Sender: FDA-Public Use
  Company Number: JP-MYLANLABS-2017M1033009

PATIENT

DRUGS (1)
  1. ERYTHROCIN STEARATE [Suspect]
     Active Substance: ERYTHROMYCIN STEARATE
     Indication: PRODUCT USED FOR UNKNOWN INDICATION
     Dosage: 200 MG, BID
     Route: 048

REACTIONS (1)
  - Renal impairment [Unknown]
